FAERS Safety Report 5025544-3 (Version None)
Quarter: 2006Q2

REPORT INFORMATION
  Report Type: 
  Country: None (occurrence: None)
  Receive Date: 20060426
  Receipt Date: 20060201
  Transmission Date: 20061013
  Serious: Yes (Other)
  Sender: FDA-Public Use
  Company Number: 2006017933

PATIENT
  Sex: Female

DRUGS (9)
  1. LYRICA [Suspect]
     Indication: NEUROPATHY
     Dosage: 150 MG (50 MG, 3 IN 1 D), ORAL
     Route: 048
     Dates: start: 20060131
  2. LIPITOR [Concomitant]
  3. GLUCOPHAGE [Concomitant]
  4. FERRIOUS SULFATE (FERROUS SULFATE) [Concomitant]
  5. ENALAPRIL MALEATE [Concomitant]
  6. GLYBURIDE [Concomitant]
  7. VITAMIN C (VITAMIN C) [Concomitant]
  8. SURFAK (DOCUSATE CALCIUM) [Concomitant]
  9. VITAMIN B12 [Concomitant]

REACTIONS (2)
  - GAIT DISTURBANCE [None]
  - SOMNOLENCE [None]
